FAERS Safety Report 10547809 (Version 3)
Quarter: 2014Q4

REPORT INFORMATION
  Report Type: Spontaneous
  Country: GB (occurrence: None)
  Receive Date: 20141024
  Receipt Date: 20141125
  Transmission Date: 20150529
  Serious: Yes (Other)
  Sender: FDA-Public Use
  Company Number: 2014-20550

PATIENT
  Age: 68 Year
  Sex: Female

DRUGS (4)
  1. EYLEA [Suspect]
     Active Substance: AFLIBERCEPT
     Indication: RETINAL VEIN OCCLUSION
     Dates: start: 20140925, end: 20140925
  2. CARVEDILOL. [Concomitant]
     Active Substance: CARVEDILOL
  3. PERINDOPRIL (PERINDOPRIL) [Concomitant]
     Active Substance: PERINDOPRIL
  4. AMLODIPINE [Concomitant]
     Active Substance: AMLODIPINE BESYLATE

REACTIONS (10)
  - Pain in extremity [None]
  - Hypertension [None]
  - Intraocular pressure increased [None]
  - Axillary pain [None]
  - Paraesthesia [None]
  - Chest pain [None]
  - Hypoaesthesia [None]
  - Pain [None]
  - Nausea [None]
  - Angina pectoris [None]

NARRATIVE: CASE EVENT DATE: 2014
